FAERS Safety Report 14634375 (Version 1)
Quarter: 2018Q1

REPORT INFORMATION
  Report Type: Spontaneous
  Country: PL (occurrence: PL)
  Receive Date: 20180314
  Receipt Date: 20180314
  Transmission Date: 20180509
  Serious: Yes (Other)
  Sender: FDA-Public Use
  Company Number: PL-TEVA-2018-PL-866874

PATIENT
  Age: 72 Year
  Sex: Male

DRUGS (2)
  1. SUMAMED [Suspect]
     Active Substance: AZITHROMYCIN ANHYDROUS
     Dosage: 500 MILLIGRAM DAILY;
     Route: 065
     Dates: start: 20180219, end: 20180221
  2. SUMAMED [Suspect]
     Active Substance: AZITHROMYCIN ANHYDROUS
     Dosage: .5 DOSAGE FORMS DAILY; HALF TABLET (500 MG) ONCE DAILY
     Dates: start: 20180222, end: 20180227

REACTIONS (5)
  - Dysgeusia [Not Recovered/Not Resolved]
  - Arrhythmia [Recovered/Resolved]
  - Fatigue [Not Recovered/Not Resolved]
  - Loss of consciousness [Recovered/Resolved]
  - Dry mouth [Recovered/Resolved]

NARRATIVE: CASE EVENT DATE: 20180219
